FAERS Safety Report 9743222 (Version 1)
Quarter: 2013Q4

REPORT INFORMATION
  Report Type: Spontaneous
  Country: US (occurrence: US)
  Receive Date: 20131210
  Receipt Date: 20131210
  Transmission Date: 20140711
  Serious: No
  Sender: FDA-Public Use
  Company Number: US-GILEAD-2009-0025078

PATIENT
  Sex: Female
  Weight: 61.23 kg

DRUGS (16)
  1. LETAIRIS [Suspect]
     Indication: PULMONARY ARTERIAL HYPERTENSION
     Route: 048
     Dates: start: 20080325
  2. COZAAR [Concomitant]
  3. TRAMADOL [Concomitant]
  4. DIGOXIN [Concomitant]
  5. ARICEPT [Concomitant]
  6. ZANTAC [Concomitant]
  7. COREG [Concomitant]
  8. TRENTAL [Concomitant]
  9. OMEPRAZOLE [Concomitant]
  10. NORTRIPTYLINE HCL [Concomitant]
  11. LISINOPRIL [Concomitant]
  12. OXYGEN [Concomitant]
  13. LEXAPRO [Concomitant]
  14. GABAPENTIN [Concomitant]
  15. VALTREX [Concomitant]
  16. POTASSIUM CHLORIDE [Concomitant]

REACTIONS (1)
  - Chest pain [Unknown]
